FAERS Safety Report 7749380-X (Version None)
Quarter: 2011Q3

REPORT INFORMATION
  Report Type: 
  Country: None (occurrence: None)
  Receive Date: 20110909
  Receipt Date: 20110831
  Transmission Date: 20111222
  Serious: Yes (Disabling, Other)
  Sender: FDA-Public Use
  Company Number: 2011MA012924

PATIENT
  Age: 22 Year
  Sex: Female

DRUGS (3)
  1. MIRTAZAPINE [Concomitant]
  2. VENLAFAXINE HYDROCHLORIDE [Suspect]
     Dosage: 300 MG;QD;PO
     Route: 048
     Dates: start: 20090901, end: 20110201
  3. QUETIAPINE [Concomitant]

REACTIONS (16)
  - DEPERSONALISATION [None]
  - PARAESTHESIA [None]
  - DECREASED APPETITE [None]
  - ANGER [None]
  - EUPHORIC MOOD [None]
  - ANXIETY [None]
  - CONSTIPATION [None]
  - EMOTIONAL DISORDER [None]
  - INSOMNIA [None]
  - DEREALISATION [None]
  - HYPOMANIA [None]
  - WEIGHT INCREASED [None]
  - SOCIAL PROBLEM [None]
  - PALPITATIONS [None]
  - NAUSEA [None]
  - FEELING ABNORMAL [None]
